FAERS Safety Report 15521450 (Version 1)
Quarter: 2018Q4

REPORT INFORMATION
  Report Type: Spontaneous
  Country: GB (occurrence: GB)
  Receive Date: 20181012
  Receipt Date: 20181012
  Transmission Date: 20190205
  Serious: Yes (Life-Threatening, Other)
  Sender: FDA-Public Use
  Company Number: None

PATIENT
  Age: 38 Year
  Sex: Female
  Weight: 60 kg

DRUGS (1)
  1. XEPLION PALIPERIDOL NOW IS 75 BEFORE WAS 150 AND 100 [Suspect]
     Active Substance: PALIPERIDONE PALMITATE
     Indication: SCHIZOPHRENIA
     Dosage: ?          QUANTITY:1 INJECTION(S);OTHER FREQUENCY:EACH 28 DAYS;?
     Route: 030

REACTIONS (10)
  - Memory impairment [None]
  - Angina pectoris [None]
  - Asthenia [None]
  - Libido decreased [None]
  - Presyncope [None]
  - Ear infection [None]
  - Suicidal ideation [None]
  - Weight increased [None]
  - Fatigue [None]
  - Syncope [None]

NARRATIVE: CASE EVENT DATE: 20180503
